FAERS Safety Report 24770038 (Version 2)
Quarter: 2025Q1

REPORT INFORMATION
  Report Type: Spontaneous
  Country: JP (occurrence: JP)
  Receive Date: 20241224
  Receipt Date: 20250112
  Transmission Date: 20250408
  Serious: Yes (Other)
  Sender: ALEXION PHARMACEUTICALS
  Company Number: JP-ASTRAZENECA-240070656_012620_P_1

PATIENT
  Age: 5 Decade

DRUGS (31)
  1. TRUQAP [Suspect]
     Active Substance: CAPIVASERTIB
     Indication: Breast cancer recurrent
  2. TRUQAP [Suspect]
     Active Substance: CAPIVASERTIB
     Route: 048
  3. TRUQAP [Suspect]
     Active Substance: CAPIVASERTIB
  4. TRUQAP [Suspect]
     Active Substance: CAPIVASERTIB
     Route: 048
  5. TRUQAP [Suspect]
     Active Substance: CAPIVASERTIB
  6. TRUQAP [Suspect]
     Active Substance: CAPIVASERTIB
     Route: 048
  7. TRUQAP [Suspect]
     Active Substance: CAPIVASERTIB
  8. TRUQAP [Suspect]
     Active Substance: CAPIVASERTIB
     Route: 048
  9. TRUQAP [Suspect]
     Active Substance: CAPIVASERTIB
     Indication: Breast cancer recurrent
  10. TRUQAP [Suspect]
     Active Substance: CAPIVASERTIB
     Route: 048
  11. TRUQAP [Suspect]
     Active Substance: CAPIVASERTIB
  12. TRUQAP [Suspect]
     Active Substance: CAPIVASERTIB
     Route: 048
  13. FASLODEX [Suspect]
     Active Substance: FULVESTRANT
     Indication: Breast cancer recurrent
  14. FASLODEX [Suspect]
     Active Substance: FULVESTRANT
     Route: 030
  15. FASLODEX [Suspect]
     Active Substance: FULVESTRANT
     Route: 030
  16. FASLODEX [Suspect]
     Active Substance: FULVESTRANT
  17. FASLODEX [Suspect]
     Active Substance: FULVESTRANT
     Route: 030
  18. FASLODEX [Suspect]
     Active Substance: FULVESTRANT
  19. FASLODEX [Suspect]
     Active Substance: FULVESTRANT
     Route: 030
  20. FASLODEX [Suspect]
     Active Substance: FULVESTRANT
  21. FASLODEX [Suspect]
     Active Substance: FULVESTRANT
     Route: 030
  22. FASLODEX [Suspect]
     Active Substance: FULVESTRANT
  23. FASLODEX [Suspect]
     Active Substance: FULVESTRANT
     Route: 030
  24. FASLODEX [Suspect]
     Active Substance: FULVESTRANT
  25. FASLODEX [Suspect]
     Active Substance: FULVESTRANT
     Route: 030
  26. FASLODEX [Suspect]
     Active Substance: FULVESTRANT
  27. FASLODEX [Suspect]
     Active Substance: FULVESTRANT
  28. FASLODEX [Suspect]
     Active Substance: FULVESTRANT
     Route: 030
  29. PALBOCICLIB [Concomitant]
     Active Substance: PALBOCICLIB
     Indication: Breast cancer
  30. Lh-rh [Concomitant]
     Indication: Breast cancer recurrent
     Route: 065
  31. Lh-rh [Concomitant]
     Route: 065

REACTIONS (5)
  - Diarrhoea [Recovering/Resolving]
  - Eosinophil count increased [Unknown]
  - Rash [Unknown]
  - Pruritus [Unknown]
  - Decreased appetite [Unknown]
